FAERS Safety Report 17963721 (Version 1)
Quarter: 2020Q2

REPORT INFORMATION
  Report Type: Report from Study
  Country: None (occurrence: US)
  Receive Date: 20200630
  Receipt Date: 20200630
  Transmission Date: 20200714
  Serious: No
  Sender: FDA-Public Use
  Company Number: US-BIOVITRUM-2020US0217

PATIENT
  Age: 69 Year
  Sex: Female

DRUGS (1)
  1. KINERET [Suspect]
     Active Substance: ANAKINRA
     Indication: SCHNITZLER^S SYNDROME
     Route: 058
     Dates: start: 20190424

REACTIONS (11)
  - Haemoglobin decreased [Unknown]
  - Hypoaesthesia [Unknown]
  - Paraesthesia [Unknown]
  - Agitation [Unknown]
  - Eosinophil count increased [Unknown]
  - Urinary tract infection [Unknown]
  - Neutrophil count increased [Unknown]
  - Cognitive disorder [Unknown]
  - Hyponatraemia [Unknown]
  - White blood cell count increased [Unknown]
  - Off label use [Unknown]

NARRATIVE: CASE EVENT DATE: 20190424
